FAERS Safety Report 11560326 (Version 1)
Quarter: 2015Q3

REPORT INFORMATION
  Report Type: Spontaneous
  Country: US (occurrence: US)
  Receive Date: 20150928
  Receipt Date: 20150928
  Transmission Date: 20151125
  Serious: No
  Sender: FDA-Public Use
  Company Number: US-PERRIGO-14US012133

PATIENT
  Age: 30 Year
  Sex: Male
  Weight: 86.17 kg

DRUGS (1)
  1. NICOTINE POLACRILEX, COATED MINT FLAVOR [Suspect]
     Active Substance: NICOTINE
     Indication: ACCIDENTAL EXPOSURE TO PRODUCT
     Dosage: 2 MG, BID
     Route: 002
     Dates: start: 20141210, end: 20141210

REACTIONS (2)
  - Drug ineffective [Unknown]
  - Accidental exposure to product [Recovered/Resolved]

NARRATIVE: CASE EVENT DATE: 20141210
